FAERS Safety Report 6170846-0 (Version None)
Quarter: 2009Q2

REPORT INFORMATION
  Report Type: 
  Country: None (occurrence: None)
  Receive Date: 20090427
  Receipt Date: 20090414
  Transmission Date: 20091009
  Serious: Yes (Hospitalization)
  Sender: FDA-Public Use
  Company Number: ADE# 09-042DPR

PATIENT
  Age: 80 Year
  Sex: Male

DRUGS (6)
  1. DIGOXIN [Suspect]
     Indication: CORONARY ARTERY BYPASS
     Dosage: ONCE A DAY ; FOR 7-10 YEARS
  2. GLIPIZIDE [Concomitant]
  3. PLAVIX [Concomitant]
  4. OVASTATIN, 40MG [Concomitant]
  5. LISINOPRIL [Concomitant]
  6. ASPIRIN [Concomitant]

REACTIONS (6)
  - ATRIAL FIBRILLATION [None]
  - CARDIAC FAILURE CONGESTIVE [None]
  - CHEST PAIN [None]
  - CORONARY ARTERY OCCLUSION [None]
  - DYSPNOEA [None]
  - PULMONARY OEDEMA [None]
